FAERS Safety Report 21930225 (Version 1)
Quarter: 2023Q1

REPORT INFORMATION
  Report Type: Spontaneous
  Country: US (occurrence: None)
  Receive Date: 20230130
  Receipt Date: 20230130
  Transmission Date: 20230418
  Serious: Yes (Hospitalization)
  Sender: FDA-Public Use
  Company Number: None

PATIENT
  Age: 93 Year
  Sex: Male
  Weight: 85.32 kg

DRUGS (22)
  1. ABIRATERONE [Suspect]
     Active Substance: ABIRATERONE
     Indication: Prostate cancer
     Dosage: FREQUENCY : DAILY;?
     Route: 048
  2. ADVAIR HFA [Concomitant]
     Active Substance: FLUTICASONE PROPIONATE\SALMETEROL XINAFOATE
  3. ALBUTEROL [Concomitant]
     Active Substance: ALBUTEROL
  4. ASPIRIN [Concomitant]
     Active Substance: ASPIRIN
  5. CALCIUM [Concomitant]
  6. CATAPRES [Concomitant]
     Active Substance: CLONIDINE HYDROCHLORIDE
  7. MINERALS\VITAMINS [Concomitant]
     Active Substance: MINERALS\VITAMINS
  8. GABAPENTIN [Concomitant]
     Active Substance: GABAPENTIN
  9. HYZAAR [Concomitant]
     Active Substance: HYDROCHLOROTHIAZIDE\LOSARTAN POTASSIUM
  10. LASIX [Concomitant]
     Active Substance: FUROSEMIDE
  11. LEVOTHYROXINE [Concomitant]
     Active Substance: LEVOTHYROXINE
  12. LUPRON [Concomitant]
     Active Substance: LEUPROLIDE ACETATE
  13. MEGESTROL [Concomitant]
     Active Substance: MEGESTROL
  14. METOPROLOL [Concomitant]
  15. NITROGLYCERIN [Concomitant]
     Active Substance: NITROGLYCERIN
  16. NITROSTAT [Concomitant]
     Active Substance: NITROGLYCERIN
  17. PREDNISONE [Concomitant]
     Active Substance: PREDNISONE
  18. PRIMIDONE [Concomitant]
     Active Substance: PRIMIDONE
  19. SIMVASTATIN [Concomitant]
     Active Substance: SIMVASTATIN
  20. SINGULAIR [Concomitant]
     Active Substance: MONTELUKAST SODIUM
  21. SLEEP AID [Concomitant]
  22. SYMBICORT [Concomitant]
     Active Substance: BUDESONIDE\FORMOTEROL FUMARATE DIHYDRATE

REACTIONS (1)
  - Pulmonary oedema [None]
